FAERS Safety Report 20864277 (Version 1)
Quarter: 2022Q2

REPORT INFORMATION
  Report Type: Spontaneous
  Country: US (occurrence: US)
  Receive Date: 20220523
  Receipt Date: 20220523
  Transmission Date: 20220720
  Serious: No
  Sender: FDA-Public Use
  Company Number: US-SA-SAC20220519001605

PATIENT
  Sex: Female

DRUGS (2)
  1. DUPIXENT [Suspect]
     Active Substance: DUPILUMAB
     Indication: Dermatitis atopic
     Dosage: 300 MG/2ML
     Route: 058
     Dates: start: 20211023
  2. CLOBETASOL [Concomitant]
     Active Substance: CLOBETASOL

REACTIONS (6)
  - Dermatitis atopic [Recovering/Resolving]
  - Discomfort [Recovering/Resolving]
  - Pain [Not Recovered/Not Resolved]
  - Rash [Recovering/Resolving]
  - Sleep disorder [Recovering/Resolving]
  - Product dose omission issue [Unknown]
